FAERS Safety Report 10239032 (Version 1)
Quarter: 2014Q2

REPORT INFORMATION
  Report Type: Report from Study
  Country: US (occurrence: US)
  Receive Date: 20140616
  Receipt Date: 20140616
  Transmission Date: 20141212
  Serious: Yes (Hospitalization)
  Sender: FDA-Public Use
  Company Number: US-ACTELION-A-US2014-100089

PATIENT
  Age: 57 Year
  Sex: Female

DRUGS (1)
  1. VELETRI [Suspect]
     Indication: COR PULMONALE CHRONIC
     Dosage: UNK
     Route: 042
     Dates: start: 20130311

REACTIONS (2)
  - Liver disorder [Unknown]
  - Catheter site erythema [Unknown]
